FAERS Safety Report 16014944 (Version 1)
Quarter: 2019Q1

REPORT INFORMATION
  Report Type: Spontaneous
  Country: AU (occurrence: AU)
  Receive Date: 20190227
  Receipt Date: 20190227
  Transmission Date: 20190418
  Serious: Yes (Congenital Anomaly, Other)
  Sender: FDA-Public Use
  Company Number: AU-TAKEDA-2019TUS009119

PATIENT

DRUGS (2)
  1. ENTYVIO [Suspect]
     Active Substance: VEDOLIZUMAB
     Indication: COLITIS ULCERATIVE
     Route: 065
  2. 6-MP [Concomitant]
     Active Substance: MERCAPTOPURINE

REACTIONS (2)
  - Developmental hip dysplasia [Recovered/Resolved]
  - Foetal exposure during pregnancy [Unknown]
